FAERS Safety Report 7102683-4 (Version None)
Quarter: 2010Q4

REPORT INFORMATION
  Report Type: 
  Country: None (occurrence: None)
  Receive Date: 20101115
  Receipt Date: 20090309
  Transmission Date: 20110411
  Serious: Yes (Death, Hospitalization)
  Sender: FDA-Public Use
  Company Number: PHHY2008DE20901

PATIENT
  Sex: Female
  Weight: 58 kg

DRUGS (2)
  1. EXELON [Suspect]
     Indication: DEMENTIA ALZHEIMER'S TYPE
     Dosage: 4.6 MG, QD
     Route: 062
     Dates: start: 20080610
  2. EXELON [Suspect]
     Dosage: 9.5 MG, QD
     Route: 062
     Dates: start: 20080715

REACTIONS (3)
  - ACUTE ABDOMEN [None]
  - GASTROINTESTINAL NECROSIS [None]
  - PANCREATITIS NECROTISING [None]
